FAERS Safety Report 19872334 (Version 2)
Quarter: 2025Q4

REPORT INFORMATION
  Report Type: Spontaneous
  Country: US (occurrence: US)
  Receive Date: 20210923
  Receipt Date: 20251217
  Transmission Date: 20260117
  Serious: Yes (Other)
  Sender: COOPERSURGICAL
  Company Number: US-COOPERSURGICAL, INC.-US-2021CPS002807

PATIENT
  Sex: Female
  Weight: 74.83 kg

DRUGS (3)
  1. PARAGARD T 380A [Suspect]
     Active Substance: COPPER
     Indication: Contraception
     Dosage: UNK
     Route: 015
     Dates: start: 20130321, end: 20171026
  2. PLAQUENIL [Concomitant]
     Active Substance: HYDROXYCHLOROQUINE SULFATE
     Dosage: UNK
     Dates: start: 200601
  3. CITALOPRAM [Concomitant]
     Active Substance: CITALOPRAM
     Dosage: UNK
     Dates: start: 200001

REACTIONS (13)
  - Surgery [Recovered/Resolved]
  - Device breakage [Recovered/Resolved]
  - Foreign body in reproductive tract [Recovered/Resolved]
  - Complication of device removal [Recovered/Resolved]
  - Embedded device [Recovered/Resolved]
  - Uterine perforation [Recovered/Resolved]
  - Pain [Unknown]
  - Heavy menstrual bleeding [Unknown]
  - Dysmenorrhoea [Unknown]
  - Muscle spasms [Unknown]
  - Abdominal pain lower [Unknown]
  - Device expulsion [Recovered/Resolved]
  - Pelvic pain [Unknown]

NARRATIVE: CASE EVENT DATE: 20170101
